FAERS Safety Report 4411008-4 (Version None)
Quarter: 2004Q3

REPORT INFORMATION
  Report Type: 
  Country: None (occurrence: None)
  Receive Date: 20040729
  Receipt Date: 20040623
  Transmission Date: 20050211
  Serious: Yes (Hospitalization)
  Sender: FDA-Public Use
  Company Number: US-BRISTOL-MYERS SQUIBB COMPANY-12623872

PATIENT
  Age: 79 Year
  Sex: Female
  Weight: 61 kg

DRUGS (10)
  1. COUMADIN [Suspect]
     Indication: ATRIAL FIBRILLATION
     Route: 048
  2. ACCUPRIL [Concomitant]
  3. CELEBREX [Concomitant]
  4. ZOCOR [Concomitant]
  5. ZOLOFT [Concomitant]
  6. ASACOL [Concomitant]
     Dates: start: 20040401
  7. NORVASC [Concomitant]
     Dates: start: 20040101
  8. AMIODARONE HCL [Concomitant]
     Dates: start: 20040201
  9. KEPPRA [Concomitant]
     Dates: start: 20040201
  10. VITAMIN B COMPLEX CAP [Concomitant]

REACTIONS (4)
  - CEREBRAL HAEMORRHAGE [None]
  - HEAD INJURY [None]
  - INTERNATIONAL NORMALISED RATIO ABNORMAL [None]
  - LOSS OF CONSCIOUSNESS [None]
